FAERS Safety Report 9601952 (Version 3)
Quarter: 2017Q3

REPORT INFORMATION
  Report Type: Spontaneous
  Country: US (occurrence: US)
  Receive Date: 20131007
  Receipt Date: 20170803
  Transmission Date: 20171128
  Serious: Yes (Other)
  Sender: FDA-Public Use
  Company Number: US-JNJFOC-20130917896

PATIENT
  Sex: Female
  Weight: 95.26 kg

DRUGS (4)
  1. RISPERDAL CONSTA [Suspect]
     Active Substance: RISPERIDONE
     Indication: PERSONALITY DISORDER
     Route: 030
     Dates: start: 200907
  2. RISPERDAL [Suspect]
     Active Substance: RISPERIDONE
     Indication: BIPOLAR DISORDER
     Route: 048
     Dates: start: 2009, end: 2010
  3. RISPERDAL [Suspect]
     Active Substance: RISPERIDONE
     Indication: BIPOLAR DISORDER
     Route: 048
     Dates: start: 200907, end: 200908
  4. RISPERDAL CONSTA [Suspect]
     Active Substance: RISPERIDONE
     Indication: PERSONALITY DISORDER
     Route: 030
     Dates: end: 201008

REACTIONS (32)
  - Adverse drug reaction [Not Recovered/Not Resolved]
  - Loss of personal independence in daily activities [Not Recovered/Not Resolved]
  - Exercise tolerance decreased [Unknown]
  - Cognitive disorder [Not Recovered/Not Resolved]
  - Anaemia [Not Recovered/Not Resolved]
  - Weight decreased [Not Recovered/Not Resolved]
  - Breast disorder [Not Recovered/Not Resolved]
  - Lipoma [Not Recovered/Not Resolved]
  - Head discomfort [Not Recovered/Not Resolved]
  - Somnolence [Not Recovered/Not Resolved]
  - Feeling abnormal [Recovered/Resolved]
  - Accident [Unknown]
  - Fluid retention [Recovering/Resolving]
  - Increased appetite [Not Recovered/Not Resolved]
  - Genital paraesthesia [Not Recovered/Not Resolved]
  - Impaired driving ability [Not Recovered/Not Resolved]
  - Hypertension [Not Recovered/Not Resolved]
  - Breast mass [Not Recovered/Not Resolved]
  - Burning sensation [Unknown]
  - Disturbance in attention [Not Recovered/Not Resolved]
  - Stupor [Not Recovered/Not Resolved]
  - Mental impairment [Not Recovered/Not Resolved]
  - Hyperhidrosis [Not Recovered/Not Resolved]
  - Abnormal behaviour [Not Recovered/Not Resolved]
  - Throat irritation [Unknown]
  - Swelling [Unknown]
  - Weight increased [Recovering/Resolving]
  - Fatigue [Not Recovered/Not Resolved]
  - Hypoaesthesia [Not Recovered/Not Resolved]
  - Head injury [Unknown]
  - Syncope [Not Recovered/Not Resolved]
  - Drug ineffective [Unknown]

NARRATIVE: CASE EVENT DATE: 2009
